FAERS Safety Report 21186697 (Version 1)
Quarter: 2022Q3

REPORT INFORMATION
  Report Type: Spontaneous
  Country: US (occurrence: None)
  Receive Date: 20220808
  Receipt Date: 20220808
  Transmission Date: 20221027
  Serious: Yes (Death)
  Sender: FDA-Public Use
  Company Number: None

PATIENT
  Sex: Male

DRUGS (4)
  1. TACROLIMUS [Suspect]
     Active Substance: TACROLIMUS
     Indication: Tracheoscopy
     Dosage: FREQUENCY : TWICE A DAY;?
     Route: 048
     Dates: start: 20200903, end: 20220718
  2. TACROLIMUS [Suspect]
     Active Substance: TACROLIMUS
     Indication: Chronic kidney disease
  3. MYCOPHENOLIC ACID [Suspect]
     Active Substance: MYCOPHENOLIC ACID
     Indication: Tracheoscopy
     Dosage: FREQUENCY : TWICE A DAY;?
     Route: 048
     Dates: start: 20200909, end: 20220718
  4. MYCOPHENOLIC ACID [Suspect]
     Active Substance: MYCOPHENOLIC ACID
     Indication: Chronic kidney disease

REACTIONS (1)
  - Renal failure [None]
